FAERS Safety Report 10038387 (Version 1)
Quarter: 2014Q1

REPORT INFORMATION
  Report Type: Spontaneous
  Country: US (occurrence: None)
  Receive Date: 20140306
  Receipt Date: 20140306
  Transmission Date: 20141002
  Serious: Yes (Other)
  Sender: FDA-Public Use
  Company Number: 163-21880-13080491

PATIENT
  Age: 78 Year
  Sex: Female
  Weight: 61.24 kg

DRUGS (1)
  1. REVLIMID(LENALIDOMIDE)(10 MILLIGRAM, CAPSULES) [Suspect]
     Indication: PLASMA CELL MYELOMA
     Dates: start: 201301

REACTIONS (4)
  - Chest pain [None]
  - Decreased appetite [None]
  - Asthenia [None]
  - Nausea [None]
